FAERS Safety Report 16353645 (Version 1)
Quarter: 2019Q2

REPORT INFORMATION
  Report Type: Spontaneous
  Country: US (occurrence: US)
  Receive Date: 20190524
  Receipt Date: 20190524
  Transmission Date: 20190711
  Serious: Yes (Other)
  Sender: FDA-Public Use
  Company Number: US-PFIZER INC-2019216465

PATIENT

DRUGS (2)
  1. TALZENNA [Suspect]
     Active Substance: TALAZOPARIB TOSYLATE
     Indication: PANCREATIC CARCINOMA
  2. TALZENNA [Suspect]
     Active Substance: TALAZOPARIB TOSYLATE
     Indication: OVARIAN CANCER
     Dosage: UNK

REACTIONS (3)
  - Off label use [Unknown]
  - Cytopenia [Unknown]
  - Product use in unapproved indication [Unknown]
